FAERS Safety Report 7604113-2 (Version None)
Quarter: 2011Q3

REPORT INFORMATION
  Report Type: 
  Country: None (occurrence: None)
  Receive Date: 20110712
  Receipt Date: 20110707
  Transmission Date: 20111222
  Serious: Yes (Other)
  Sender: FDA-Public Use
  Company Number: US-PFIZER INC-2011153838

PATIENT
  Sex: Female
  Weight: 88.435 kg

DRUGS (4)
  1. ZOLOFT [Concomitant]
     Dosage: UNK
  2. MORPHINE [Concomitant]
     Dosage: UNK
  3. VALIUM [Concomitant]
     Dosage: 10 MG, UNK
  4. LYRICA [Suspect]
     Indication: NEURALGIA
     Dosage: 100 MG, 3X/DAY
     Route: 048
     Dates: start: 20090101

REACTIONS (1)
  - PREMATURE DELIVERY [None]
